FAERS Safety Report 23092251 (Version 3)
Quarter: 2023Q4

REPORT INFORMATION
  Report Type: Spontaneous
  Country: PL (occurrence: PL)
  Receive Date: 20231021
  Receipt Date: 20231120
  Transmission Date: 20240110
  Serious: Yes (Hospitalization, Other)
  Sender: FDA-Public Use
  Company Number: PL-SA-SAC20231018000246

PATIENT
  Age: 68 Year
  Sex: Male
  Weight: 78 kg

DRUGS (8)
  1. CERDELGA [Suspect]
     Active Substance: ELIGLUSTAT
     Indication: Gaucher^s disease type I
     Dosage: 84 MG, BID
     Route: 048
     Dates: start: 20230421
  2. EXFERANA [Concomitant]
     Indication: Iron overload
     Dosage: 360 MG, QD
     Route: 048
     Dates: start: 20230527
  3. CO VALSACOR [Concomitant]
     Indication: Hypertension
     Dosage: 1 DF, QD (80 +12.5 - 1X1 TABLET)
     Route: 048
     Dates: start: 2020
  4. METFORMIN HYDROCHLORIDE [Concomitant]
     Active Substance: METFORMIN HYDROCHLORIDE
     Indication: Type 2 diabetes mellitus
     Dosage: 2 DF, QD (500 MG, DOSAGE: 2 X 1)
     Route: 048
     Dates: start: 2017
  5. METOPROLOL [Concomitant]
     Active Substance: METOPROLOL
     Dosage: 50MG
  6. AMOXICILLIN\CLAVULANIC ACID [Concomitant]
     Active Substance: AMOXICILLIN\CLAVULANIC ACID
     Indication: Hypertension
  7. MEROPENEM [Concomitant]
     Active Substance: MEROPENEM
     Indication: Hypertension
  8. DEFERASIROX [Concomitant]
     Active Substance: DEFERASIROX
     Indication: Iron overload
     Route: 048

REACTIONS (4)
  - Otitis media [Not Recovered/Not Resolved]
  - Purulence [Not Recovered/Not Resolved]
  - Bloody discharge [Not Recovered/Not Resolved]
  - Pancytopenia [Not Recovered/Not Resolved]

NARRATIVE: CASE EVENT DATE: 20230501
